FAERS Safety Report 4801721-9 (Version None)
Quarter: 2005Q4

REPORT INFORMATION
  Report Type: 
  Country: None (occurrence: None)
  Receive Date: 20051012
  Receipt Date: 20050929
  Transmission Date: 20060501
  Serious: Yes (Other)
  Sender: FDA-Public Use
  Company Number: 2005137205

PATIENT
  Age: 70 Year
  Sex: Male

DRUGS (3)
  1. IRINOTECAN HCL [Suspect]
     Indication: RECTAL CANCER
     Dosage: 64 MG, INTRAVENOUS
     Route: 042
     Dates: start: 20050621, end: 20050823
  2. FLUOROURACIL [Concomitant]
  3. CALCIUM LEVOFOLINATE (CALCIUM LEVOFOLINATE) [Concomitant]

REACTIONS (2)
  - DECREASED APPETITE [None]
  - INTERSTITIAL LUNG DISEASE [None]
